FAERS Safety Report 6835646-4 (Version None)
Quarter: 2010Q3

REPORT INFORMATION
  Report Type: 
  Country: None (occurrence: None)
  Receive Date: 20100713
  Receipt Date: 20100706
  Transmission Date: 20110219
  Serious: Yes (Hospitalization, Other)
  Sender: FDA-Public Use
  Company Number: JP-JNJFOC-20100109360

PATIENT
  Sex: Female

DRUGS (12)
  1. RISPERDAL [Suspect]
     Indication: SCHIZOPHRENIA
     Route: 048
  2. RISPERDAL [Suspect]
     Route: 048
  3. RISPERDAL [Suspect]
     Route: 048
  4. RISPERDAL [Suspect]
     Route: 048
  5. FLUNITRAZEPAM [Concomitant]
     Indication: INSOMNIA
     Route: 048
  6. FLUNITRAZEPAM [Concomitant]
     Route: 048
  7. FLUNITRAZEPAM [Concomitant]
     Route: 048
  8. BIPERIDEN HYDROCHLORIDE TAB [Concomitant]
     Indication: PARKINSONISM
     Route: 048
  9. ALPRAZOLAM [Concomitant]
     Indication: SCHIZOPHRENIA
     Route: 048
  10. ALPRAZOLAM [Concomitant]
     Route: 048
  11. NITRAZEPAM [Concomitant]
     Indication: INSOMNIA
     Route: 048
  12. ARIPIPRAZOLE [Concomitant]
     Indication: PRODUCT USED FOR UNKNOWN INDICATION
     Route: 065

REACTIONS (4)
  - DYSKINESIA [None]
  - INCORRECT DOSE ADMINISTERED [None]
  - PLEUROTHOTONUS [None]
  - TORTICOLLIS [None]
